FAERS Safety Report 9225745 (Version 2)
Quarter: 2013Q3

REPORT INFORMATION
  Report Type: Report from Study
  Country: JP (occurrence: JP)
  Receive Date: 20130411
  Receipt Date: 20130802
  Transmission Date: 20140515
  Serious: Yes (Death)
  Sender: FDA-Public Use
  Company Number: JP-GLAXOSMITHKLINE-B0882104A

PATIENT
  Age: 66 Year
  Sex: Male
  Weight: 61 kg

DRUGS (2)
  1. VOTRIENT [Suspect]
     Indication: MYXOFIBROSARCOMA
     Dosage: 800MG PER DAY
     Route: 048
     Dates: start: 20130227, end: 20130316
  2. CONIEL [Concomitant]
     Indication: HYPERTENSION
     Route: 048

REACTIONS (2)
  - Interstitial lung disease [Fatal]
  - Pyrexia [Not Recovered/Not Resolved]
